FAERS Safety Report 6712900-8 (Version None)
Quarter: 2010Q2

REPORT INFORMATION
  Report Type: 
  Country: None (occurrence: None)
  Receive Date: 20100506
  Receipt Date: 20100429
  Transmission Date: 20101027
  Serious: Yes (Other)
  Sender: FDA-Public Use
  Company Number: CN-TYCO HEALTHCARE/MALLINCKRODT-T201001143

PATIENT
  Age: 12 Year
  Sex: Female

DRUGS (3)
  1. SODIUM IODIDE I 131 [Suspect]
     Indication: METASTASES TO LUNG
     Dosage: 100 MCI, SINGLE
     Dates: start: 20020101, end: 20020101
  2. SODIUM IODIDE I 131 [Suspect]
     Dosage: 150 MCI, REPEATED PERIODICALLY WITH AN INTERVAL OF 6 MONTHS
  3. LEVOTHYROXINE SODIUM [Concomitant]
     Dosage: SUPRESSIVE DOSES BETWEEN I 131 TREATMENT COURSES

REACTIONS (2)
  - PNEUMONITIS [None]
  - PULMONARY FIBROSIS [None]
